FAERS Safety Report 4556045-4 (Version None)
Quarter: 2005Q1

REPORT INFORMATION
  Report Type: 
  Country: None (occurrence: None)
  Receive Date: 20050119
  Receipt Date: 20041014
  Transmission Date: 20050727
  Serious: Yes (Other)
  Sender: FDA-Public Use
  Company Number: CH-GLAXOSMITHKLINE-B0349154A

PATIENT
  Age: 71 Year
  Sex: Female

DRUGS (7)
  1. AUGMENTIN '125' [Suspect]
     Indication: INFECTED SKIN ULCER
     Dosage: 1000MG TWICE PER DAY
     Route: 048
     Dates: start: 20040916, end: 20040916
  2. TRITTICO [Suspect]
     Route: 048
     Dates: start: 20040801
  3. SEROQUEL [Suspect]
     Route: 048
     Dates: start: 20040801
  4. LORAZEPAM [Concomitant]
     Route: 048
  5. ZESTRIL [Concomitant]
     Route: 048
     Dates: start: 20040801
  6. TOREM [Concomitant]
     Route: 048
     Dates: start: 20040901
  7. MARCUMAR [Concomitant]
     Route: 048

REACTIONS (17)
  - AGGRESSION [None]
  - CEREBRAL HAEMATOMA [None]
  - CONVULSION [None]
  - COORDINATION ABNORMAL [None]
  - CYANOSIS [None]
  - FALL [None]
  - GRAND MAL CONVULSION [None]
  - HEAD INJURY [None]
  - HYPOTONIA [None]
  - INFECTED SKIN ULCER [None]
  - MOUTH HAEMORRHAGE [None]
  - RESPIRATORY ARREST [None]
  - SEPSIS [None]
  - STAPHYLOCOCCAL INFECTION [None]
  - STREPTOCOCCAL INFECTION [None]
  - TONGUE BITING [None]
  - TRAUMATIC HAEMATOMA [None]
